FAERS Safety Report 23096765 (Version 1)
Quarter: 2023Q4

REPORT INFORMATION
  Report Type: Spontaneous
  Country: SI (occurrence: SI)
  Receive Date: 20231023
  Receipt Date: 20231023
  Transmission Date: 20240110
  Serious: Yes (Life-Threatening, Hospitalization)
  Sender: FDA-Public Use
  Company Number: None

PATIENT
  Age: 78 Year
  Sex: Female

DRUGS (11)
  1. VFEND [Suspect]
     Active Substance: VORICONAZOLE
     Indication: Aspergillus infection
     Dosage: FREQ:12 H;
     Route: 048
     Dates: start: 20230803, end: 20230813
  2. VFEND [Suspect]
     Active Substance: VORICONAZOLE
     Indication: Aspergillus infection
     Dosage: FREQ:12 H
     Route: 048
     Dates: start: 20230821, end: 20230824
  3. PANTOPRAZOLE SODIUM [Concomitant]
     Active Substance: PANTOPRAZOLE SODIUM
     Dosage: 1X1 (REGULAR THERAPY)
     Route: 048
  4. DOXAZOSIN MESYLATE [Concomitant]
     Active Substance: DOXAZOSIN MESYLATE
     Indication: Blood pressure increased
     Dosage: 1TBL IN THE EVENING
     Route: 048
     Dates: start: 20230803
  5. RAMIPRIL [Concomitant]
     Active Substance: RAMIPRIL
     Dosage: 1 TABLET IN THE EVENING
     Route: 048
  6. AZOPT [Concomitant]
     Active Substance: BRINZOLAMIDE
     Dosage: STRENGTH: 10 MG/ML2X 1 DROP IN THE EYE
     Route: 047
  7. LATANOPROST\TIMOLOL MALEATE [Concomitant]
     Active Substance: LATANOPROST\TIMOLOL MALEATE
     Dosage: STRENGTH: 0,05 MG/5 MG IN 1 ML1 DROP IN THE EVENINGS
     Route: 047
  8. LACIDIPINE [Concomitant]
     Active Substance: LACIDIPINE
     Dosage: 1 TBL. IN THE EVENINGS
     Route: 048
  9. ARTELAC UNO [Concomitant]
     Dosage: STRENGTH: 3,2 MG/ML1 DROP SEVERAL TIMES A DAY IN BOTH EYES
     Route: 047
  10. FLUTICASONE FUROATE\VILANTEROL TRIFENATATE [Concomitant]
     Active Substance: FLUTICASONE FUROATE\VILANTEROL TRIFENATATE
     Dosage: STRENGTH: 92 MICROGRAMS/22 MICROGRAMS1INHALATION IN THE MORNINGS
     Route: 055
  11. AMPRIL HD [Concomitant]
     Dosage: STRENGTH: 5 MG/25 MG1 TABLET IN THE MORNING
     Route: 048
     Dates: end: 20230814

REACTIONS (2)
  - Hypokalaemia [Recovered/Resolved]
  - Hyponatraemia [Recovered/Resolved]

NARRATIVE: CASE EVENT DATE: 20230813
